FAERS Safety Report 6393961-5 (Version None)
Quarter: 2009Q4

REPORT INFORMATION
  Report Type: 
  Country: None (occurrence: None)
  Receive Date: 20091008
  Receipt Date: 20091005
  Transmission Date: 20100525
  Serious: Yes (Hospitalization)
  Sender: FDA-Public Use
  Company Number: US-B.I. PHARMACEUTICALS,INC./RIDGEFIELD-2009-BP-11680YA

PATIENT
  Sex: Male

DRUGS (5)
  1. TAMSULOSIN HCL [Suspect]
     Route: 048
  2. LIPITOR [Suspect]
     Route: 048
  3. CASODEX [Suspect]
     Route: 048
  4. PROSCAR [Suspect]
     Route: 048
  5. ROLAIDS [Suspect]
     Route: 048

REACTIONS (1)
  - BLOOD SODIUM DECREASED [None]
